FAERS Safety Report 5193990-3 (Version None)
Quarter: 2006Q4

REPORT INFORMATION
  Report Type: 
  Country: None (occurrence: None)
  Receive Date: 20061228
  Receipt Date: 20060912
  Transmission Date: 20070319
  Serious: No
  Sender: FDA-Public Use
  Company Number: US-GLAXOSMITHKLINE-A0619928A

PATIENT
  Sex: Female

DRUGS (3)
  1. FLOVENT [Suspect]
     Indication: ASTHMA
     Dosage: 2PUFF TWICE PER DAY
     Route: 055
     Dates: start: 20060801, end: 20060905
  2. PREDNISONE TAB [Suspect]
     Dates: start: 20060801, end: 20060901
  3. LIPITOR [Concomitant]

REACTIONS (3)
  - IRRITABILITY [None]
  - THINKING ABNORMAL [None]
  - TREMOR [None]
